FAERS Safety Report 8392993-5 (Version None)
Quarter: 2012Q2

REPORT INFORMATION
  Report Type: 
  Country: None (occurrence: None)
  Receive Date: 20120529
  Receipt Date: 20120305
  Transmission Date: 20120825
  Serious: No
  Sender: FDA-Public Use
  Company Number: US-ABBOTT-12P-163-0913093-00

PATIENT
  Sex: Male
  Weight: 86.26 kg

DRUGS (6)
  1. ANDROGEL [Suspect]
     Route: 061
     Dates: start: 20120201
  2. ASPIRIN [Concomitant]
     Indication: CARDIAC DISORDER
  3. ANDROGEL [Suspect]
     Indication: BLOOD TESTOSTERONE DECREASED
     Route: 061
     Dates: start: 20111001, end: 20111201
  4. ANDROGEL [Suspect]
     Route: 061
     Dates: start: 20111201, end: 20120101
  5. FISH OIL [Concomitant]
     Indication: BLOOD CHOLESTEROL
  6. VITAMIN B COMPLEX CAP [Concomitant]
     Indication: VITAMIN SUPPLEMENTATION

REACTIONS (1)
  - BLOOD TESTOSTERONE DECREASED [None]
